FAERS Safety Report 7897978-0 (Version None)
Quarter: 2011Q4

REPORT INFORMATION
  Report Type: 
  Country: None (occurrence: None)
  Receive Date: 20111107
  Receipt Date: 20111107
  Transmission Date: 20120403
  Serious: No
  Sender: FDA-Public Use
  Company Number: None

PATIENT
  Age: 32 Year
  Sex: Female
  Weight: 65.77 kg

DRUGS (3)
  1. PREDNISONE [Suspect]
     Indication: ASTHMA
     Dosage: 40MG
     Route: 048
     Dates: start: 20110822, end: 20110824
  2. AMPHETAMINE AND DEXTROAMPHETAMINE SALTS [Interacting]
     Route: 048
  3. AMPHETAMI SALTS [Concomitant]
     Indication: ATTENTION DEFICIT/HYPERACTIVITY DISORDER
     Dosage: 40MG
     Route: 048

REACTIONS (6)
  - PALPITATIONS [None]
  - AGGRESSION [None]
  - SKIN DISCOLOURATION [None]
  - ASTHMA [None]
  - HYPERHIDROSIS [None]
  - DRUG INTERACTION [None]
